FAERS Safety Report 10197142 (Version 1)
Quarter: 2014Q2

REPORT INFORMATION
  Report Type: Spontaneous
  Country: US (occurrence: US)
  Receive Date: 20140527
  Receipt Date: 20140527
  Transmission Date: 20141212
  Serious: Yes (Other)
  Sender: FDA-Public Use
  Company Number: US-TEVA-483350USA

PATIENT
  Age: 50 Year
  Sex: Female

DRUGS (6)
  1. BUPROPION [Suspect]
     Indication: POST-TRAUMATIC STRESS DISORDER
     Route: 065
  2. CITALOPRAM [Suspect]
     Indication: POST-TRAUMATIC STRESS DISORDER
     Route: 065
  3. MIRTAZAPINE [Suspect]
     Route: 065
  4. PAROXETINE [Suspect]
     Indication: POST-TRAUMATIC STRESS DISORDER
     Dosage: 5MG
     Route: 065
  5. SERTRALINE [Suspect]
     Indication: POST-TRAUMATIC STRESS DISORDER
     Route: 065
  6. LORAZEPAM [Suspect]
     Indication: POST-TRAUMATIC STRESS DISORDER
     Route: 065

REACTIONS (14)
  - Suicidal ideation [Recovered/Resolved]
  - Homicidal ideation [Recovered/Resolved]
  - Somnolence [Recovered/Resolved]
  - Night sweats [Recovered/Resolved]
  - Loss of libido [Recovered/Resolved]
  - Weight increased [Recovered/Resolved]
  - Constipation [Recovered/Resolved]
  - Fatigue [Recovered/Resolved]
  - Intentional product misuse [Recovered/Resolved]
  - Depressive symptom [Recovered/Resolved]
  - Agitation [Recovered/Resolved]
  - Insomnia [Recovered/Resolved]
  - Central obesity [Recovered/Resolved]
  - Motor dysfunction [Recovered/Resolved]
